FAERS Safety Report 23182899 (Version 1)
Quarter: 2023Q4

REPORT INFORMATION
  Report Type: Spontaneous
  Country: US (occurrence: US)
  Receive Date: 20231114
  Receipt Date: 20231114
  Transmission Date: 20240110
  Serious: Yes (Hospitalization, Other)
  Sender: FDA-Public Use
  Company Number: US-GILEAD-2023-0651006

PATIENT
  Sex: Female

DRUGS (6)
  1. EPCLUSA [Suspect]
     Active Substance: SOFOSBUVIR\VELPATASVIR
     Indication: Chronic hepatitis C
     Dosage: 1 DOSAGE FORM, QD
     Route: 048
     Dates: start: 20231027
  2. MIRTAZAPINE [Concomitant]
     Active Substance: MIRTAZAPINE
  3. CAPECITABINE [Concomitant]
     Active Substance: CAPECITABINE
  4. DEXAMETHASONE [Concomitant]
     Active Substance: DEXAMETHASONE
  5. FUROSEMIDE [Concomitant]
     Active Substance: FUROSEMIDE
  6. LACTULOSE [Concomitant]
     Active Substance: LACTULOSE

REACTIONS (3)
  - Hepatic cirrhosis [Unknown]
  - Pleural effusion [Unknown]
  - Asthenia [Unknown]
